FAERS Safety Report 9418644 (Version 1)
Quarter: 2013Q3

REPORT INFORMATION
  Report Type: Spontaneous
  Country: US (occurrence: US)
  Receive Date: 20130725
  Receipt Date: 20130725
  Transmission Date: 20140515
  Serious: Yes (Hospitalization)
  Sender: FDA-Public Use
  Company Number: US-BRISTOL-MYERS SQUIBB COMPANY-19115799

PATIENT
  Sex: Female

DRUGS (8)
  1. MEGACE TABS [Suspect]
     Indication: BLOOD OESTROGEN INCREASED
     Dates: start: 200608
  2. MEGACE TABS [Suspect]
     Indication: OVERWEIGHT
     Dates: start: 200608
  3. SYNTHROID [Concomitant]
  4. ATACAND [Concomitant]
  5. DETROL LA [Concomitant]
  6. ZOCOR [Concomitant]
  7. PLAVIX [Concomitant]
  8. ASPIRIN [Concomitant]

REACTIONS (2)
  - Cerebrovascular accident [Unknown]
  - Transient ischaemic attack [Unknown]
